FAERS Safety Report 23251644 (Version 2)
Quarter: 2024Q1

REPORT INFORMATION
  Report Type: Spontaneous
  Country: US (occurrence: US)
  Receive Date: 20231201
  Receipt Date: 20240105
  Transmission Date: 20240409
  Serious: No
  Sender: FDA-Public Use
  Company Number: US-LEO Pharma-365480

PATIENT
  Age: 61 Year
  Sex: Female

DRUGS (2)
  1. ADBRY [Suspect]
     Active Substance: TRALOKINUMAB-LDRM
     Indication: Dermatitis atopic
     Dosage: IT IS NOT REPORTED IF THE PATIENT IS CONTINUING WITH ADBRY? TREATMENT
     Dates: start: 202311
  2. Protopic 0.1% [Concomitant]
     Indication: Eczema
     Dosage: TWICE A DAY IN OCT-2018, 0.1%
     Dates: start: 201810

REACTIONS (2)
  - Rash [Recovered/Resolved]
  - Rash macular [Recovered/Resolved]
